FAERS Safety Report 7064878-8 (Version None)
Quarter: 2010Q4

REPORT INFORMATION
  Report Type: 
  Country: None (occurrence: None)
  Receive Date: 20101027
  Receipt Date: 19880510
  Transmission Date: 20110411
  Serious: Yes (Death)
  Sender: FDA-Public Use
  Company Number: DE-ROCHE-880314604001

PATIENT
  Sex: Female
  Weight: 80 kg

DRUGS (10)
  1. ROFERON-A [Suspect]
     Indication: RENAL CELL CARCINOMA
     Route: 058
     Dates: start: 19880311, end: 19880413
  2. ISOSORBIDE DINITRATE [Concomitant]
     Route: 048
     Dates: start: 19880206, end: 19880307
  3. DIGITOXIN [Concomitant]
     Route: 048
     Dates: start: 19880206, end: 19880307
  4. AMBROXOL HYDROCHLORIDE [Concomitant]
     Route: 048
     Dates: start: 19880223, end: 19880307
  5. TRIAMTEREN COMP.-RATIOPHARM [Concomitant]
     Route: 048
     Dates: start: 19880223, end: 19880317
  6. FAMOTIDINE [Concomitant]
     Indication: ULCER
     Route: 048
     Dates: start: 19880223, end: 19880414
  7. PIRETANIDE [Concomitant]
     Route: 048
     Dates: start: 19880302, end: 19880307
  8. GLYCERYL TRINITRATE [Concomitant]
     Route: 061
     Dates: start: 19880308, end: 19880511
  9. ALLOPURINOL [Concomitant]
     Indication: HYPERURICAEMIA
     Route: 048
     Dates: start: 19880311, end: 19880414
  10. METOCLOPRAMIDE [Concomitant]
     Indication: NAUSEA
     Route: 048
     Dates: start: 19880330, end: 19880504

REACTIONS (3)
  - CARDIAC FAILURE [None]
  - CIRCULATORY COLLAPSE [None]
  - RASH GENERALISED [None]
